FAERS Safety Report 6756552-X (Version None)
Quarter: 2010Q2

REPORT INFORMATION
  Report Type: 
  Country: None (occurrence: None)
  Receive Date: 20100604
  Receipt Date: 20100525
  Transmission Date: 20101027
  Serious: Yes (Hospitalization)
  Sender: FDA-Public Use
  Company Number: BR-AMGEN-QUU415838

PATIENT
  Sex: Female
  Weight: 65 kg

DRUGS (8)
  1. ENBREL [Suspect]
     Indication: DRUG USE FOR UNKNOWN INDICATION
     Route: 058
     Dates: start: 20090101, end: 20090901
  2. ENBREL [Suspect]
     Route: 058
     Dates: start: 20091101
  3. ENBREL [Suspect]
     Route: 058
     Dates: start: 20091201, end: 20100201
  4. ENBREL [Suspect]
     Route: 058
     Dates: start: 20100419
  5. METHADONE HYDROCHLORIDE [Concomitant]
     Route: 048
     Dates: start: 20090101
  6. RITONAVIR [Concomitant]
     Route: 048
     Dates: start: 20050101
  7. ATAZANAVIR SULFATE [Concomitant]
     Route: 048
     Dates: start: 20050101
  8. LAMIVUDINE + ZIDOVUDINE [Concomitant]
     Route: 048
     Dates: start: 20050101

REACTIONS (9)
  - CELLULITIS [None]
  - ERYTHEMA [None]
  - HEADACHE [None]
  - MASS [None]
  - OEDEMA PERIPHERAL [None]
  - PROTEINURIA [None]
  - PYREXIA [None]
  - SWELLING FACE [None]
  - URINARY TRACT INFECTION [None]
